FAERS Safety Report 11043116 (Version 1)
Quarter: 2015Q2

REPORT INFORMATION
  Report Type: Spontaneous
  Country: US (occurrence: None)
  Receive Date: 20150416
  Receipt Date: 20150416
  Transmission Date: 20150821
  Serious: Yes (Disabling, Other)
  Sender: FDA-Public Use
  Company Number: None

PATIENT
  Age: 60 Year
  Sex: Female
  Weight: 56.7 kg

DRUGS (2)
  1. SOVALDI [Suspect]
     Active Substance: SOFOSBUVIR
     Indication: HEPATITIS C
     Dosage: 1; AM
  2. RIBASPHERE [Suspect]
     Active Substance: RIBAVIRIN
     Dosage: 2; PM

REACTIONS (10)
  - Vision blurred [None]
  - Alopecia [None]
  - Depression [None]
  - Depressed mood [None]
  - Rash [None]
  - Nightmare [None]
  - Skin papilloma [None]
  - Gingival bleeding [None]
  - Autoimmune thyroiditis [None]
  - Abdominal pain [None]

NARRATIVE: CASE EVENT DATE: 20150325
